FAERS Safety Report 17403112 (Version 1)
Quarter: 2020Q1

REPORT INFORMATION
  Report Type: Spontaneous
  Country: HU (occurrence: HU)
  Receive Date: 20200211
  Receipt Date: 20200211
  Transmission Date: 20200409
  Serious: Yes (Hospitalization, Other)
  Sender: FDA-Public Use
  Company Number: HU-JNJFOC-20200204455

PATIENT
  Age: 70 Year
  Sex: Male

DRUGS (1)
  1. RIVAROXABAN [Suspect]
     Active Substance: RIVAROXABAN
     Indication: ATRIAL FIBRILLATION
     Dosage: 20 MG, QD
     Route: 048

REACTIONS (11)
  - Pulmonary embolism [Unknown]
  - Abdominal hernia [Unknown]
  - Dyspnoea exertional [Not Recovered/Not Resolved]
  - Microembolism [Unknown]
  - Sinus tachycardia [Unknown]
  - Pulmonary congestion [Unknown]
  - Obesity [Unknown]
  - Generalised oedema [Unknown]
  - Atrial fibrillation [Recovering/Resolving]
  - Cardiac failure [Recovering/Resolving]
  - Dyspnoea [Unknown]
